FAERS Safety Report 10605602 (Version 1)
Quarter: 2014Q4

REPORT INFORMATION
  Report Type: Report from Study
  Country: NL (occurrence: NL)
  Receive Date: 20141124
  Receipt Date: 20141124
  Transmission Date: 20150529
  Serious: Yes (Hospitalization, Other)
  Sender: FDA-Public Use
  Company Number: NL-AMGEN-NLDSL2012086742

PATIENT
  Age: 72 Year
  Sex: Male

DRUGS (1)
  1. ARANESP [Suspect]
     Active Substance: DARBEPOETIN ALFA
     Indication: PRODUCT USED FOR UNKNOWN INDICATION
     Dosage: 1 ML (500MCG/ML), Q3WK
     Route: 065
     Dates: start: 20121115, end: 20130503

REACTIONS (10)
  - Pulmonary embolism [Unknown]
  - Pancreatic carcinoma [Unknown]
  - Back pain [Unknown]
  - Pain [Unknown]
  - Bone pain [Unknown]
  - Drug effect incomplete [Unknown]
  - Pain in extremity [Recovering/Resolving]
  - Haemoglobin decreased [Unknown]
  - Metastases to bone [Unknown]
  - Asthenia [Unknown]
